FAERS Safety Report 9777599 (Version 1)
Quarter: 2013Q4

REPORT INFORMATION
  Report Type: Report from Study
  Country: ID (occurrence: ID)
  Receive Date: 20131222
  Receipt Date: 20131222
  Transmission Date: 20140711
  Serious: Yes (Death)
  Sender: FDA-Public Use
  Company Number: ID-ROCHE-1322579

PATIENT
  Age: 81 Year
  Sex: Female

DRUGS (1)
  1. BONVIVA [Suspect]
     Indication: OSTEOPOROSIS
     Route: 065
     Dates: end: 20131022

REACTIONS (2)
  - Death [Fatal]
  - Fatigue [Unknown]
